FAERS Safety Report 15791062 (Version 1)
Quarter: 2019Q1

REPORT INFORMATION
  Report Type: Spontaneous
  Country: US (occurrence: US)
  Receive Date: 20190104
  Receipt Date: 20190104
  Transmission Date: 20190417
  Serious: No
  Sender: FDA-Public Use
  Company Number: None

PATIENT
  Age: 58 Year
  Sex: Female
  Weight: 64.8 kg

DRUGS (8)
  1. ASPIRIN 325 MG [Concomitant]
     Active Substance: ASPIRIN
  2. QUERCETIN [Concomitant]
     Active Substance: QUERCETIN
  3. VITAMIN D [Concomitant]
     Active Substance: CHOLECALCIFEROL
  4. BENADRYL [Concomitant]
     Active Substance: DIPHENHYDRAMINE HYDROCHLORIDE
  5. CROMOLYN SODIUM ORAL SOLUTION (CONCENTRATE) 100MG/5ML [Suspect]
     Active Substance: CROMOLYN SODIUM
     Indication: MAST CELL ACTIVATION SYNDROME
     Dosage: ?          QUANTITY:3 AMPULES;?
     Route: 048
     Dates: start: 20181229
  6. ZYRTEC [Concomitant]
     Active Substance: CETIRIZINE HYDROCHLORIDE
  7. VITAMIN B12 [Concomitant]
     Active Substance: CYANOCOBALAMIN
  8. FEXOFENADINE [Concomitant]
     Active Substance: FEXOFENADINE\FEXOFENADINE HYDROCHLORIDE

REACTIONS (6)
  - Product packaging quantity issue [None]
  - Diarrhoea [None]
  - Product quality issue [None]
  - Abdominal pain lower [None]
  - Muscle spasms [None]
  - Middle insomnia [None]

NARRATIVE: CASE EVENT DATE: 20181231
